FAERS Safety Report 7070454-3 (Version None)
Quarter: 2010Q4

REPORT INFORMATION
  Report Type: 
  Country: None (occurrence: None)
  Receive Date: 20101028
  Receipt Date: 20101028
  Transmission Date: 20110411
  Serious: Yes (Other)
  Sender: FDA-Public Use
  Company Number: None

PATIENT
  Sex: Female
  Weight: 43.0917 kg

DRUGS (2)
  1. FOSAMAX [Suspect]
     Indication: OSTEOPOROSIS
     Dosage: 70 MGM WKLY ORAL
     Route: 048
     Dates: start: 20010101, end: 20080101
  2. ALENDRONATE 70 MGMGM TEVA [Suspect]
     Indication: OSTEOPOROSIS
     Dosage: WKLY ORAL
     Route: 048
     Dates: start: 20080101, end: 20100317

REACTIONS (3)
  - DECREASED ACTIVITY [None]
  - PAIN [None]
  - RIB FRACTURE [None]
